APPROVED DRUG PRODUCT: TOPICORT
Active Ingredient: DESOXIMETASONE
Strength: 0.25%
Dosage Form/Route: SPRAY;TOPICAL
Application: N204141 | Product #001 | TE Code: AT
Applicant: SUN PHARMA CANADA INC
Approved: Apr 11, 2013 | RLD: Yes | RS: Yes | Type: RX

PATENTS:
Patent 8715624 | Expires: May 26, 2026
Patent 8277780 | Expires: Sep 1, 2028